FAERS Safety Report 10521515 (Version 3)
Quarter: 2014Q4

REPORT INFORMATION
  Report Type: Report from Study
  Country: CA (occurrence: CA)
  Receive Date: 20141016
  Receipt Date: 20141021
  Transmission Date: 20150528
  Serious: Yes (Other)
  Sender: FDA-Public Use
  Company Number: CA-AMGEN-CANSP2014037008

PATIENT
  Age: 56 Year
  Sex: Female

DRUGS (5)
  1. METHOTREXATE [Concomitant]
     Active Substance: METHOTREXATE
     Dosage: 25 MG, QWK (2.5 MG 10 TABLETS WEEKLY)
     Route: 048
  2. FOLIC ACID. [Concomitant]
     Active Substance: FOLIC ACID
     Dosage: 5 MG, TID
  3. SYNTHROID [Concomitant]
     Active Substance: LEVOTHYROXINE SODIUM
     Dosage: 0.25 MG,DAILY
  4. ENBREL [Suspect]
     Active Substance: ETANERCEPT
     Indication: PSORIATIC ARTHROPATHY
     Dosage: 50 MG, QWK
     Route: 065
     Dates: start: 20060506
  5. CRESTOR [Concomitant]
     Active Substance: ROSUVASTATIN CALCIUM
     Dosage: 10 MG, UNK

REACTIONS (7)
  - Diabetes mellitus [Not Recovered/Not Resolved]
  - Hepatic steatosis [Not Recovered/Not Resolved]
  - Diplegia [Recovered/Resolved]
  - Diarrhoea [Not Recovered/Not Resolved]
  - Colitis [Unknown]
  - Pain in extremity [Recovered/Resolved]
  - Gastrointestinal disorder [Recovered/Resolved]

NARRATIVE: CASE EVENT DATE: 2013
